FAERS Safety Report 4512660-5 (Version None)
Quarter: 2004Q4

REPORT INFORMATION
  Report Type: 
  Country: None (occurrence: None)
  Receive Date: 20041124
  Receipt Date: 20041111
  Transmission Date: 20050328
  Serious: Yes (Death, Hospitalization)
  Sender: FDA-Public Use
  Company Number: TOS-000657

PATIENT
  Age: 50 Year
  Sex: Male

DRUGS (1)
  1. TOSTIMOMAB, IODINE I 131 TOSTIUMOMAB(TOSTIUMOMAB, IODINE 131, TOSTIUMO [Suspect]
     Indication: NON-HODGKIN'S LYMPHOMA
     Dosage: TOSITUMOMAB 450 MG INTRAVENOUS
     Route: 042
     Dates: start: 20040903, end: 20040903

REACTIONS (34)
  - ACTIVATED PARTIAL THROMBOPLASTIN TIME PROLONGED [None]
  - ASPARTATE AMINOTRANSFERASE INCREASED [None]
  - BLADDER DISORDER [None]
  - BLADDER DISTENSION [None]
  - BLOOD ALKALINE PHOSPHATASE INCREASED [None]
  - BLOOD LACTATE DEHYDROGENASE INCREASED [None]
  - CARDIO-RESPIRATORY ARREST [None]
  - CATHETER RELATED COMPLICATION [None]
  - CHRONIC LYMPHOCYTIC LEUKAEMIA [None]
  - CONDITION AGGRAVATED [None]
  - CONSTIPATION [None]
  - CYSTITIS HAEMORRHAGIC [None]
  - DECREASED APPETITE [None]
  - DEPRESSED LEVEL OF CONSCIOUSNESS [None]
  - EMOTIONAL DISTRESS [None]
  - GENERAL PHYSICAL HEALTH DETERIORATION [None]
  - GROIN PAIN [None]
  - HAEMATURIA [None]
  - HEPATOMEGALY [None]
  - HYDRONEPHROSIS [None]
  - LIVER FUNCTION TEST ABNORMAL [None]
  - LUNG NEOPLASM [None]
  - LYMPHADENOPATHY [None]
  - MALIGNANT NEOPLASM PROGRESSION [None]
  - NECROSIS [None]
  - OEDEMA PERIPHERAL [None]
  - PAIN IN EXTREMITY [None]
  - PANCYTOPENIA [None]
  - RENAL FAILURE ACUTE [None]
  - SUPRAPUBIC PAIN [None]
  - THERAPY NON-RESPONDER [None]
  - URINARY BLADDER HAEMORRHAGE [None]
  - URINARY RETENTION [None]
  - URINE ANALYSIS ABNORMAL [None]
